FAERS Safety Report 9643947 (Version 1)
Quarter: 2013Q4

REPORT INFORMATION
  Report Type: Spontaneous
  Country: DK (occurrence: DK)
  Receive Date: 20131024
  Receipt Date: 20131024
  Transmission Date: 20140711
  Serious: Yes (Death)
  Sender: FDA-Public Use
  Company Number: DK-WATSON-2013-18569

PATIENT
  Age: 30 Year
  Sex: Female

DRUGS (4)
  1. TRANEXAMIC ACID (UNKNOWN) [Suspect]
     Indication: MENORRHAGIA
     Dosage: 1 G, TID
     Route: 065
  2. PERLUTEX [Concomitant]
     Indication: MENORRHAGIA
     Dosage: 1 TABLET ,BID
     Route: 048
  3. METHYLPHENIDATE [Concomitant]
     Indication: PRODUCT USED FOR UNKNOWN INDICATION
     Dosage: 10 MG, BID
     Route: 065
  4. LAMOTRIGIN [Concomitant]
     Indication: PRODUCT USED FOR UNKNOWN INDICATION
     Dosage: 100 MG, DAILY
     Route: 065

REACTIONS (3)
  - Pulmonary embolism [Fatal]
  - Cardiac arrest [Fatal]
  - Lactic acidosis [Fatal]
